FAERS Safety Report 25400853 (Version 1)
Quarter: 2025Q2

REPORT INFORMATION
  Report Type: Spontaneous
  Country: US (occurrence: US)
  Receive Date: 20250605
  Receipt Date: 20250605
  Transmission Date: 20250717
  Serious: No
  Sender: PIERRE FABRE MEDICAMENT
  Company Number: US-PFM-2024-02641

PATIENT
  Sex: Female
  Weight: 6.893 kg

DRUGS (1)
  1. HEMANGEOL [Suspect]
     Active Substance: PROPRANOLOL HYDROCHLORIDE
     Indication: Haemangioma
     Dosage: 1.5 ML, TID (3/DAY)
     Dates: start: 20240425

REACTIONS (3)
  - Hypersomnia [Unknown]
  - Inappropriate schedule of product administration [Unknown]
  - Off label use [Unknown]
